FAERS Safety Report 16921008 (Version 2)
Quarter: 2019Q4

REPORT INFORMATION
  Report Type: Other
  Country: DE (occurrence: DE)
  Receive Date: 20191015
  Receipt Date: 20191211
  Transmission Date: 20200122
  Serious: Yes (Other)
  Sender: FDA-Public Use
  Company Number: DE-TOPROL ACQUISITION LLC-2019-TOP-001254

PATIENT
  Age: 1 Day
  Sex: Female
  Weight: 3 kg

DRUGS (10)
  1. PARACETAMOL [Concomitant]
     Active Substance: ACETAMINOPHEN
     Indication: PAIN
     Dosage: IN TOTAL 4 TABLETS
     Route: 064
  2. PARACETAMOL [Concomitant]
     Active Substance: ACETAMINOPHEN
     Indication: FOETAL EXPOSURE DURING PREGNANCY
  3. L-THYROXIN                         /00068001/ [Concomitant]
     Active Substance: LEVOTHYROXINE
     Indication: HYPOTHYROIDISM
     Dosage: 75 ?G/INHAL
     Route: 064
     Dates: start: 20171209, end: 20180922
  4. L-THYROXIN                         /00068001/ [Concomitant]
     Active Substance: LEVOTHYROXINE
     Indication: FOETAL EXPOSURE DURING PREGNANCY
  5. FOLSAN [Concomitant]
     Active Substance: FOLIC ACID
     Indication: PROPHYLAXIS OF NEURAL TUBE DEFECT
     Dosage: 5 MG DAILY
     Route: 064
     Dates: start: 20171209, end: 20180801
  6. METOPROLOL SUCCINATE. [Suspect]
     Active Substance: METOPROLOL SUCCINATE
     Indication: HYPERTENSION
     Dosage: 95 MG DAILY
     Route: 064
     Dates: start: 20171209, end: 20180922
  7. FOLSAN [Concomitant]
     Active Substance: FOLIC ACID
     Indication: FOETAL EXPOSURE DURING PREGNANCY
  8. VITAMIN B COMPLEX [Concomitant]
     Active Substance: CYANOCOBALAMIN\DEXPANTHENOL\NIACINAMIDE\PYRIDOXINE HYDROCHLORIDE\RIBOFLAVIN 5^-PHOSPHATE SODIUM\THIAMINE HYDROCHLORIDE\VITAMIN B COMPLEX
     Indication: PRODUCT USED FOR UNKNOWN INDICATION
     Dosage: UNK
     Route: 064
     Dates: start: 20171209, end: 20180922
  9. VITAMIN B COMPLEX [Concomitant]
     Active Substance: CYANOCOBALAMIN\DEXPANTHENOL\NIACINAMIDE\PYRIDOXINE HYDROCHLORIDE\RIBOFLAVIN 5^-PHOSPHATE SODIUM\THIAMINE HYDROCHLORIDE\VITAMIN B COMPLEX
     Indication: FOETAL EXPOSURE DURING PREGNANCY
  10. METOPROLOL SUCCINATE. [Suspect]
     Active Substance: METOPROLOL SUCCINATE
     Indication: FOETAL EXPOSURE DURING PREGNANCY

REACTIONS (5)
  - Hypoglycaemia neonatal [Recovered/Resolved]
  - Naevus flammeus [Unknown]
  - Foetal exposure during pregnancy [Unknown]
  - Arrhythmia neonatal [Recovered/Resolved]
  - Neonatal infection [Recovered/Resolved]

NARRATIVE: CASE EVENT DATE: 20180922
